FAERS Safety Report 13086464 (Version 3)
Quarter: 2017Q1

REPORT INFORMATION
  Report Type: Report from Study
  Country: None (occurrence: HU)
  Receive Date: 20170104
  Receipt Date: 20170125
  Transmission Date: 20170428
  Serious: Yes (Death)
  Sender: FDA-Public Use
  Company Number: HU-ABBVIE-17K-076-1828703-00

PATIENT
  Age: 76 Year
  Sex: Female
  Weight: 65 kg

DRUGS (5)
  1. ASPIRIN PROTECT [Concomitant]
     Active Substance: ASPIRIN
     Indication: HYPERTENSIVE HEART DISEASE
     Dosage: 1 TABLET IN THE MORNING
     Route: 048
  2. MADOPAR [Concomitant]
     Active Substance: BENSERAZIDE HYDROCHLORIDE\LEVODOPA
     Indication: PARKINSON^S DISEASE
     Dosage: 100/25MG, 1 TABLET IN THE MORNING
     Route: 048
  3. CO PRENESSA [Concomitant]
     Indication: HYPERTENSION
     Dosage: 1 TABLET IN THE MORNING
     Route: 048
  4. PANANGIN [Concomitant]
     Active Substance: MAGNESIUM ASPARTATE\POTASSIUM ASPARTATE
     Indication: HYPERTENSIVE HEART DISEASE
     Dosage: 158/140MG
     Route: 048
  5. DUODOPA [Suspect]
     Active Substance: CARBIDOPA\LEVODOPA
     Indication: PARKINSON^S DISEASE
     Dosage: MORNING DOSE 8ML; CONTINUOUS DOSE 4.2ML/H;EXTRA DOSE 2ML
     Route: 050
     Dates: start: 20160721, end: 20170101

REACTIONS (2)
  - Sudden death [Fatal]
  - Myocardial necrosis [Fatal]

NARRATIVE: CASE EVENT DATE: 20170102
